FAERS Safety Report 7826450-9 (Version None)
Quarter: 2011Q4

REPORT INFORMATION
  Report Type: 
  Country: None (occurrence: None)
  Receive Date: 20111020
  Receipt Date: 20111006
  Transmission Date: 20120403
  Serious: Yes (Life-Threatening, Hospitalization)
  Sender: FDA-Public Use
  Company Number: CA-ALVOGEN-2011AL000075

PATIENT
  Age: 52 Year
  Sex: Female

DRUGS (8)
  1. MACROBID [Suspect]
     Indication: PRODUCT USED FOR UNKNOWN INDICATION
  2. CODEINE SULFATE [Suspect]
     Indication: PRODUCT USED FOR UNKNOWN INDICATION
  3. AVELOX [Suspect]
     Indication: PRODUCT USED FOR UNKNOWN INDICATION
  4. REMICADE [Suspect]
     Dosage: 1 EVERY 8 WEEK(S)
  5. AMOXICILLIN [Suspect]
     Indication: PRODUCT USED FOR UNKNOWN INDICATION
  6. REMICADE [Suspect]
     Indication: PRODUCT USED FOR UNKNOWN INDICATION
     Dosage: 1 EVERY 8 WEEK(S)
  7. REMICADE [Suspect]
     Dosage: 1 EVERY 8 WEEK(S)
  8. REMICADE [Suspect]
     Dosage: 1 EVERY 8 WEEK(S)

REACTIONS (13)
  - DISEASE PROGRESSION [None]
  - ANAPHYLACTIC SHOCK [None]
  - DIZZINESS [None]
  - CYSTITIS [None]
  - ABDOMINAL DISTENSION [None]
  - BLADDER OPERATION [None]
  - CROHN'S DISEASE [None]
  - HYPOTENSION [None]
  - DEHYDRATION [None]
  - ABDOMINAL DISCOMFORT [None]
  - INCISION SITE ABSCESS [None]
  - DRUG HYPERSENSITIVITY [None]
  - DRUG INTERACTION [None]
